FAERS Safety Report 14253466 (Version 1)
Quarter: 2017Q4

REPORT INFORMATION
  Report Type: Spontaneous
  Country: CA (occurrence: CA)
  Receive Date: 20171206
  Receipt Date: 20171206
  Transmission Date: 20180321
  Serious: Yes (Other)
  Sender: FDA-Public Use
  Company Number: CA-009507513-1712CAN002051

PATIENT
  Age: 84 Year

DRUGS (1)
  1. KEYTRUDA [Suspect]
     Active Substance: PEMBROLIZUMAB
     Indication: MALIGNANT MELANOMA
     Dosage: 9 CYCLES

REACTIONS (3)
  - Hypothyroidism [Unknown]
  - Encephalitis [Unknown]
  - Adrenal insufficiency [Unknown]
